FAERS Safety Report 10817855 (Version 1)
Quarter: 2015Q1

REPORT INFORMATION
  Report Type: Spontaneous
  Country: US (occurrence: US)
  Receive Date: 20150218
  Receipt Date: 20150218
  Transmission Date: 20150721
  Serious: Yes (Hospitalization, Other)
  Sender: FDA-Public Use
  Company Number: US-APOTEX-2012AP003433

PATIENT
  Age: 23 Year
  Sex: Male

DRUGS (3)
  1. FLUDROCORTISONE [Suspect]
     Active Substance: FLUDROCORTISONE
     Indication: PRODUCT USED FOR UNKNOWN INDICATION
     Dosage: 0.1 MG, BID
  2. LAMOTRIGINE. [Suspect]
     Active Substance: LAMOTRIGINE
     Dosage: 3-MONTH SUPPLY OF MEDICATION
     Route: 048
  3. LAMOTRIGINE. [Suspect]
     Active Substance: LAMOTRIGINE
     Indication: PRODUCT USED FOR UNKNOWN INDICATION
     Dosage: 150 MG, DAILY
     Route: 048

REACTIONS (10)
  - Myoclonus [Recovering/Resolving]
  - Agitation [Recovering/Resolving]
  - Delirium [Unknown]
  - Electrocardiogram QRS complex prolonged [Unknown]
  - Generalised tonic-clonic seizure [Unknown]
  - Overdose [Unknown]
  - Lethargy [Unknown]
  - Toxicity to various agents [Recovered/Resolved]
  - Tachypnoea [Unknown]
  - Ataxia [Unknown]
